FAERS Safety Report 8775901 (Version 3)
Quarter: 2013Q1

REPORT INFORMATION
  Report Type: Report from Study
  Country: DE (occurrence: DE)
  Receive Date: 20120910
  Receipt Date: 20130201
  Transmission Date: 20140127
  Serious: Yes (Hospitalization)
  Sender: FDA-Public Use
  Company Number: DE-ROCHE-1119881

PATIENT
  Age: 62 Year
  Sex: Female
  Weight: 78 kg

DRUGS (7)
  1. RITUXIMAB [Suspect]
     Indication: RHEUMATOID ARTHRITIS
     Dosage: LAST DOSE 02/FEB/2012
     Route: 042
     Dates: start: 20120112, end: 20120202
  2. METAMIZOL [Concomitant]
  3. IBUPROFEN [Concomitant]
     Dosage: AS REQUIRED
     Route: 065
  4. FORADIL [Concomitant]
     Indication: ASTHMA
     Route: 065
  5. BECLOMETHASONE [Concomitant]
     Route: 065
  6. PREDNISOLON [Concomitant]
     Route: 065
  7. MIRTAZAPIN [Concomitant]
     Route: 065

REACTIONS (3)
  - Cardiac arrest [Recovered/Resolved]
  - Chest pain [Recovered/Resolved]
  - Hypertensive heart disease [Recovered/Resolved]
